FAERS Safety Report 6559052-5 (Version None)
Quarter: 2010Q1

REPORT INFORMATION
  Report Type: 
  Country: None (occurrence: None)
  Receive Date: 20100129
  Receipt Date: 20100118
  Transmission Date: 20100710
  Serious: Yes (Hospitalization)
  Sender: FDA-Public Use
  Company Number: IE-ELI_LILLY_AND_COMPANY-IE200910002835

PATIENT
  Sex: Female

DRUGS (5)
  1. FORTEO [Suspect]
     Indication: OSTEOPOROTIC FRACTURE
     Dosage: UNK, UNKNOWN
     Route: 058
     Dates: start: 20090901, end: 20090909
  2. LEXAPRO [Concomitant]
     Dosage: 25 G, UNKNOWN
     Route: 048
     Dates: start: 20080101
  3. IDEOS                              /00944201/ [Concomitant]
     Dosage: UNK, UNKNOWN
     Route: 048
     Dates: start: 20020101
  4. HUMIRA [Concomitant]
     Indication: RHEUMATOID ARTHRITIS
     Dosage: 40 G, UNKNOWN
     Route: 058
     Dates: start: 20061101
  5. CAPOTEN [Concomitant]
     Dosage: 21 G, UNKNOWN
     Route: 048
     Dates: start: 20030101

REACTIONS (1)
  - HYPOTENSION [None]
